FAERS Safety Report 7774364-5 (Version None)
Quarter: 2011Q3

REPORT INFORMATION
  Report Type: 
  Country: None (occurrence: None)
  Receive Date: 20110923
  Receipt Date: 20110908
  Transmission Date: 20111222
  Serious: Yes (Hospitalization)
  Sender: FDA-Public Use
  Company Number: PHHY2011ES79663

PATIENT
  Age: 61 Year
  Sex: Female

DRUGS (2)
  1. HYDROCHLOROTHIAZIDE [Interacting]
     Dosage: 25 MG DAILY
     Route: 048
     Dates: start: 20060101
  2. DIOVAN [Suspect]
     Dosage: 160 MG, DAILY
     Route: 048
     Dates: start: 20110602, end: 20110607

REACTIONS (2)
  - HYPONATRAEMIA [None]
  - DRUG INTERACTION [None]
